FAERS Safety Report 14477285 (Version 1)
Quarter: 2018Q1

REPORT INFORMATION
  Report Type: Report from Study
  Country: US (occurrence: US)
  Receive Date: 20180201
  Receipt Date: 20180201
  Transmission Date: 20180509
  Serious: No
  Sender: FDA-Public Use
  Company Number: US-EXELIXIS-CABO-17010210

PATIENT
  Age: 65 Year
  Sex: Male

DRUGS (3)
  1. DULOXETINE. [Concomitant]
     Active Substance: DULOXETINE
  2. CABOMETYX [Suspect]
     Active Substance: CABOZANTINIB S-MALATE
     Indication: RENAL CANCER
     Dosage: 60 MG, QD
     Route: 048
     Dates: start: 20170531
  3. THYROXINE [Concomitant]
     Active Substance: LEVOTHYROXINE

REACTIONS (2)
  - Oral pain [Unknown]
  - Fatigue [Unknown]

NARRATIVE: CASE EVENT DATE: 20170817
